FAERS Safety Report 8129571-9 (Version None)
Quarter: 2012Q1

REPORT INFORMATION
  Report Type: 
  Country: None (occurrence: None)
  Receive Date: 20120210
  Receipt Date: 20120201
  Transmission Date: 20120608
  Serious: Yes (Death)
  Sender: FDA-Public Use
  Company Number: US-GLAXOSMITHKLINE-A0901869A

PATIENT
  Age: 83 Year
  Sex: Male

DRUGS (2)
  1. IMMUNE GLOBULIN INTRAVENOUS (HUMAN) [Concomitant]
     Indication: IDIOPATHIC THROMBOCYTOPENIC PURPURA
  2. PROMACTA [Suspect]
     Indication: IDIOPATHIC THROMBOCYTOPENIC PURPURA
     Dosage: 50MG PER DAY
     Route: 048
     Dates: start: 20100728, end: 20101018

REACTIONS (9)
  - PALLOR [None]
  - FATIGUE [None]
  - THROMBOCYTOPENIA [None]
  - GRANULOCYTOPENIA [None]
  - INCREASED TENDENCY TO BRUISE [None]
  - ACUTE LEUKAEMIA [None]
  - DRUG INEFFECTIVE [None]
  - ANAEMIA [None]
  - HAEMORRHAGE [None]
